FAERS Safety Report 25943664 (Version 1)
Quarter: 2025Q4

REPORT INFORMATION
  Report Type: Report from Study
  Country: US (occurrence: US)
  Receive Date: 20251021
  Receipt Date: 20251021
  Transmission Date: 20260117
  Serious: No
  Sender: MALLINCKRODT
  Company Number: US-MALLINCKRODT-MNK202506534

PATIENT
  Age: 68 Year
  Sex: Male
  Weight: 160 kg

DRUGS (1)
  1. CORTICOTROPIN [Suspect]
     Active Substance: CORTICOTROPIN
     Indication: Pulmonary sarcoidosis
     Dosage: 80 UNITS
     Route: 058
     Dates: start: 202505

REACTIONS (1)
  - Non-24-hour sleep-wake disorder [Unknown]

NARRATIVE: CASE EVENT DATE: 20250101
